FAERS Safety Report 9802001 (Version 1)
Quarter: 2014Q1

REPORT INFORMATION
  Report Type: Spontaneous
  Country: GB (occurrence: GB)
  Receive Date: 20140107
  Receipt Date: 20140107
  Transmission Date: 20141002
  Serious: Yes (Other)
  Sender: FDA-Public Use
  Company Number: GB-TEVA-453802ISR

PATIENT
  Age: 60 Year
  Sex: Male
  Weight: 107.9 kg

DRUGS (7)
  1. VENLAFAXINE [Suspect]
     Indication: DEPRESSION
     Route: 048
     Dates: start: 20131204, end: 20131212
  2. OMEPRAZOLE [Concomitant]
  3. FOLIC ACID [Concomitant]
  4. FEXOFENADINE [Concomitant]
  5. VITAMIN B12 [Concomitant]
  6. MIRTAZAPINE [Concomitant]
     Dosage: AT NIGHT
  7. OLOPATADINE [Concomitant]

REACTIONS (3)
  - Pancreatitis [Recovering/Resolving]
  - Abdominal pain [Unknown]
  - Amylase increased [Unknown]
